FAERS Safety Report 4536458-7 (Version None)
Quarter: 2004Q4

REPORT INFORMATION
  Report Type: 
  Country: None (occurrence: None)
  Receive Date: 20041223
  Receipt Date: 20041207
  Transmission Date: 20050328
  Serious: Yes (Hospitalization)
  Sender: FDA-Public Use
  Company Number: US-JNJFOC-20041202446

PATIENT
  Sex: Male

DRUGS (2)
  1. NATRECOR [Suspect]
     Dosage: INTRAVENOUS INFUSION
     Route: 042
     Dates: end: 20030101
  2. NATRECOR [Suspect]
     Dosage: BOLUS DOSE
     Route: 042
     Dates: end: 20030101

REACTIONS (4)
  - ANXIETY [None]
  - HYPERTENSION [None]
  - RESPIRATORY FAILURE [None]
  - TREMOR [None]
